FAERS Safety Report 8243680-5 (Version None)
Quarter: 2012Q1

REPORT INFORMATION
  Report Type: 
  Country: None (occurrence: None)
  Receive Date: 20120329
  Receipt Date: 20120322
  Transmission Date: 20120608
  Serious: Yes (Life-Threatening)
  Sender: FDA-Public Use
  Company Number: SI-UCBSA-053965

PATIENT
  Age: 71 Year
  Sex: Female
  Weight: 63 kg

DRUGS (7)
  1. CIMZIA [Suspect]
     Route: 058
     Dates: start: 20110414, end: 20120216
  2. LEFLUNOMIDE [Concomitant]
     Dosage: DAILY DOSE: 2000 MG
  3. NOLIPREL FORTE [Concomitant]
  4. ECYTARA [Concomitant]
  5. BISOPROLOL FUMARATE [Concomitant]
  6. MADOPAR [Concomitant]
  7. NEXIUM [Concomitant]

REACTIONS (1)
  - TUBERCULOSIS [None]
